FAERS Safety Report 14841885 (Version 1)
Quarter: 2018Q2

REPORT INFORMATION
  Report Type: Spontaneous
  Country: US (occurrence: US)
  Receive Date: 20180503
  Receipt Date: 20180503
  Transmission Date: 20180711
  Serious: No
  Sender: FDA-Public Use
  Company Number: US-PFIZER INC-2018176021

PATIENT
  Age: 51 Year
  Sex: Female

DRUGS (3)
  1. HUMIRA [Concomitant]
     Active Substance: ADALIMUMAB
     Dosage: UNK
     Dates: start: 201601, end: 201609
  2. METHOTREXATE. [Suspect]
     Active Substance: METHOTREXATE
     Indication: RHEUMATOID ARTHRITIS
     Dosage: UNK
     Dates: start: 201508, end: 201711
  3. METHOTREXATE SODIUM. [Suspect]
     Active Substance: METHOTREXATE SODIUM
     Indication: RHEUMATOID ARTHRITIS
     Dosage: 25 MG, UNK
     Dates: start: 201602, end: 201606

REACTIONS (1)
  - Alopecia [Unknown]
